FAERS Safety Report 7552909-8 (Version None)
Quarter: 2011Q2

REPORT INFORMATION
  Report Type: 
  Country: None (occurrence: None)
  Receive Date: 20110616
  Receipt Date: 20101001
  Transmission Date: 20111010
  Serious: No
  Sender: FDA-Public Use
  Company Number: US-ASTRAZENECA-2010SE46485

PATIENT
  Sex: Female

DRUGS (3)
  1. FASLODEX [Suspect]
     Route: 030
  2. INDERAL [Concomitant]
  3. MAVIK [Concomitant]

REACTIONS (1)
  - CARBOHYDRATE ANTIGEN 27.29 INCREASED [None]
